FAERS Safety Report 13332349 (Version 2)
Quarter: 2017Q2

REPORT INFORMATION
  Report Type: Report from Study
  Country: MX (occurrence: MX)
  Receive Date: 20170314
  Receipt Date: 20170412
  Transmission Date: 20170830
  Serious: Yes (Other)
  Sender: FDA-Public Use
  Company Number: PHHY2017MX037580

PATIENT
  Age: 60 Year
  Sex: Female
  Weight: 68.5 kg

DRUGS (3)
  1. RASILEZ HCT [Suspect]
     Active Substance: ALISKIREN\HYDROCHLOROTHIAZIDE
     Indication: PROPHYLAXIS
     Dosage: 1 DF, QD
     Route: 048
     Dates: start: 20170314
  2. GALVUS MET [Suspect]
     Active Substance: METFORMIN HYDROCHLORIDE\VILDAGLIPTIN
     Indication: BLOOD GLUCOSE ABNORMAL
     Dosage: 2 DF (METFORMIN 850 MG, VILDAGLIPTIN 50 MG), QD (3 YEARS AGO)
     Route: 048
  3. RASILEZ HCT [Suspect]
     Active Substance: ALISKIREN\HYDROCHLOROTHIAZIDE
     Indication: HYPERTENSION
     Dosage: 1 DF (300), QD
     Route: 048
     Dates: start: 2013, end: 201606

REACTIONS (6)
  - Eye haemorrhage [Recovered/Resolved]
  - Blood pressure increased [Unknown]
  - Renal pain [Not Recovered/Not Resolved]
  - Product use in unapproved indication [Not Recovered/Not Resolved]
  - Blood pressure inadequately controlled [Unknown]
  - Headache [Unknown]

NARRATIVE: CASE EVENT DATE: 201608
